FAERS Safety Report 6382356-6 (Version None)
Quarter: 2009Q3

REPORT INFORMATION
  Report Type: 
  Country: None (occurrence: None)
  Receive Date: 20090928
  Receipt Date: 20090928
  Transmission Date: 20100115
  Serious: Yes (Other)
  Sender: FDA-Public Use
  Company Number: None

PATIENT
  Age: 51 Year
  Sex: Female
  Weight: 67 kg

DRUGS (1)
  1. ISOVUE-300 [Suspect]
     Indication: SCAN WITH CONTRAST
     Dosage: ONE TIME DOSE/IV ONE TIME DOSE
     Route: 042
     Dates: start: 20090112

REACTIONS (2)
  - DYSPNOEA [None]
  - THROAT TIGHTNESS [None]
